FAERS Safety Report 6138888-9 (Version None)
Quarter: 2009Q1

REPORT INFORMATION
  Report Type: 
  Country: None (occurrence: None)
  Receive Date: 20090331
  Receipt Date: 20090313
  Transmission Date: 20090719
  Serious: No
  Sender: FDA-Public Use
  Company Number: CA-B.I. PHARMACEUTICALS,INC./RIDGEFIELD-2009-BP-03894BP

PATIENT
  Sex: Female

DRUGS (1)
  1. MIRAPEX [Suspect]
     Indication: PARKINSON'S DISEASE
     Dates: start: 20000401, end: 20030901

REACTIONS (8)
  - ANXIETY [None]
  - COMPULSIVE SHOPPING [None]
  - HYPERSEXUALITY [None]
  - HYPOMANIA [None]
  - NAUSEA [None]
  - PATHOLOGICAL GAMBLING [None]
  - SLEEP DISORDER [None]
  - WEIGHT DECREASED [None]
